FAERS Safety Report 16598540 (Version 1)
Quarter: 2019Q3

REPORT INFORMATION
  Report Type: Spontaneous
  Country: DE (occurrence: DE)
  Receive Date: 20190719
  Receipt Date: 20190719
  Transmission Date: 20191004
  Serious: Yes (Hospitalization)
  Sender: FDA-Public Use
  Company Number: DE-PFIZER INC-2019302191

PATIENT
  Age: 83 Year
  Sex: Female

DRUGS (6)
  1. LEVOTHYROXINE. [Concomitant]
     Active Substance: LEVOTHYROXINE
     Dosage: 50 UG, 1X/DAY, 1-0-0-0, ALTERNATING WITH 50 ?G
  2. LEVOTHYROXINE. [Concomitant]
     Active Substance: LEVOTHYROXINE
     Dosage: 75 UG, 1X/DAY, 1-0-0-0, ALTERNATING WITH 75 UG
  3. EXELON [Concomitant]
     Active Substance: RIVASTIGMINE TARTRATE
     Dosage: 4.6 MG, CHANGE EVERY 24 H
  4. CEFUROXIME. [Suspect]
     Active Substance: CEFUROXIME
     Dosage: UNK MG, UNK
  5. ACETYLSALICYLIC ACID [Suspect]
     Active Substance: ASPIRIN
     Dosage: 100 MG, UNK
  6. METOPROLOL. [Concomitant]
     Active Substance: METOPROLOL
     Dosage: 47.5 MG, UNK

REACTIONS (2)
  - Diarrhoea [Unknown]
  - Haematochezia [Unknown]
